FAERS Safety Report 5155009-X (Version None)
Quarter: 2006Q4

REPORT INFORMATION
  Report Type: 
  Country: None (occurrence: None)
  Receive Date: 20061121
  Receipt Date: 20061011
  Transmission Date: 20070319
  Serious: Yes (Other)
  Sender: FDA-Public Use
  Company Number: PHNU2006DE03408

PATIENT
  Age: 71 Year
  Sex: Male

DRUGS (11)
  1. DEXAMETHASONE TAB [Suspect]
     Indication: PLASMACYTOMA
     Dosage: INTERMITTENT 400 MG/DAY
     Route: 065
     Dates: start: 20050501, end: 20050701
  2. BENDAMUSTINE [Suspect]
     Indication: PLASMACYTOMA
     Route: 065
     Dates: start: 20050801, end: 20060201
  3. OMEPRAZOLE [Concomitant]
     Indication: GASTRITIS
     Dosage: 20 MG/DAY
     Route: 048
  4. EPOGEN [Concomitant]
     Indication: ANAEMIA
     Dosage: 20000 UNK, QW
     Route: 065
  5. NEUPOGEN [Concomitant]
     Indication: NEUTROPENIA
     Dosage: INTERMITTENT
     Route: 065
  6. METOCLOPRAMIDE [Concomitant]
     Indication: NAUSEA
     Dosage: UNK, PRN
     Route: 065
  7. CIPROFLOXACIN [Concomitant]
     Indication: PROPHYLAXIS
     Dosage: 250 MG, BID
     Route: 065
  8. METAMIZOLE [Concomitant]
     Indication: PAIN
     Route: 065
  9. FENTANYL [Concomitant]
     Indication: PAIN
     Dosage: 75 UG
     Route: 062
  10. CORTICOSTEROIDS [Suspect]
     Route: 065
  11. ZOMETA [Suspect]
     Indication: MULTIPLE MYELOMA
     Dosage: 4 MG, QMO
     Route: 042
     Dates: start: 20050601, end: 20061001

REACTIONS (5)
  - DENTAL CARIES [None]
  - DENTAL TREATMENT [None]
  - OSTEONECROSIS [None]
  - PERIODONTITIS [None]
  - TOOTH EXTRACTION [None]
